FAERS Safety Report 14079694 (Version 2)
Quarter: 2017Q4

REPORT INFORMATION
  Report Type: Spontaneous
  Country: BR (occurrence: BR)
  Receive Date: 20171012
  Receipt Date: 20171020
  Transmission Date: 20180321
  Serious: Yes (Other)
  Sender: FDA-Public Use
  Company Number: BR-PFIZER INC-2017434259

PATIENT
  Age: 67 Year
  Sex: Male

DRUGS (5)
  1. MINIDIAB [Suspect]
     Active Substance: GLIPIZIDE
     Indication: TYPE 2 DIABETES MELLITUS
     Dosage: 2 TABLETS AT BREAKFAST
     Dates: start: 20171005, end: 20171008
  2. SIMVASTATIN. [Concomitant]
     Active Substance: SIMVASTATIN
     Dosage: UNK
     Dates: start: 201612
  3. FUROSEMIDE. [Concomitant]
     Active Substance: FUROSEMIDE
     Dosage: UNK
     Dates: start: 201612
  4. LOSARTAN. [Concomitant]
     Active Substance: LOSARTAN
     Dosage: UNK
  5. AAS [Concomitant]
     Active Substance: ASPIRIN
     Dosage: UNK
     Dates: start: 201612

REACTIONS (3)
  - Drug dose titration not performed [Recovered/Resolved]
  - Product use issue [Unknown]
  - Diabetes mellitus inadequate control [Recovered/Resolved]

NARRATIVE: CASE EVENT DATE: 201710
